FAERS Safety Report 4589567-0 (Version None)
Quarter: 2005Q1

REPORT INFORMATION
  Report Type: 
  Country: None (occurrence: None)
  Receive Date: 20050217
  Receipt Date: 20050208
  Transmission Date: 20050727
  Serious: Yes (Hospitalization)
  Sender: FDA-Public Use
  Company Number: THQ2005A00185

PATIENT
  Age: 70 Year
  Sex: Female

DRUGS (3)
  1. ACTOS [Suspect]
     Indication: DIABETES MELLITUS NON-INSULIN-DEPENDENT
     Dosage: 15 MG
  2. METGORMIN [Concomitant]
  3. SULFONYLUREA (ORAL ANTIDIABETICS) [Concomitant]

REACTIONS (2)
  - CIRCULATORY COLLAPSE [None]
  - COMA [None]
